FAERS Safety Report 7372984-3 (Version None)
Quarter: 2011Q1

REPORT INFORMATION
  Report Type: 
  Country: None (occurrence: None)
  Receive Date: 20110324
  Receipt Date: 20110318
  Transmission Date: 20110831
  Serious: Yes (Other)
  Sender: FDA-Public Use
  Company Number: FR-PFIZER INC-2011059662

PATIENT
  Age: 61 Year
  Sex: Female
  Weight: 61 kg

DRUGS (1)
  1. LYRICA [Suspect]
     Indication: NEURALGIA
     Dosage: UNK
     Route: 048
     Dates: start: 20100820

REACTIONS (17)
  - CONSTIPATION [None]
  - HYPOAESTHESIA [None]
  - FORMICATION [None]
  - PRURITUS [None]
  - DISTURBANCE IN ATTENTION [None]
  - GAIT DISTURBANCE [None]
  - WEIGHT FLUCTUATION [None]
  - HYPOGLYCAEMIA [None]
  - DEPRESSED MOOD [None]
  - ASTHENIA [None]
  - MEMORY IMPAIRMENT [None]
  - FLATULENCE [None]
  - VISUAL IMPAIRMENT [None]
  - MUSCLE SPASMS [None]
  - ABNORMAL SENSATION IN EYE [None]
  - DECREASED APPETITE [None]
  - CONFUSIONAL STATE [None]
